FAERS Safety Report 18969202 (Version 1)
Quarter: 2021Q1

REPORT INFORMATION
  Report Type: Spontaneous
  Country: DE (occurrence: DE)
  Receive Date: 20210304
  Receipt Date: 20210304
  Transmission Date: 20210420
  Serious: Yes (Other)
  Sender: FDA-Public Use
  Company Number: PHHY2019DE106418

PATIENT
  Sex: Male

DRUGS (4)
  1. VALSARTAN ? 1 A PHARMA [Suspect]
     Active Substance: VALSARTAN
     Dosage: 320 MG, QD (HALF A TABLET OF 320 MG)
     Route: 065
     Dates: start: 20180319, end: 20180716
  2. CARAMLO [Suspect]
     Active Substance: AMLODIPINE BESYLATE\CANDESARTAN CILEXETIL
     Indication: ESSENTIAL HYPERTENSION
     Dosage: UNK
     Route: 065
  3. VALSARTAN ? 1 A PHARMA [Suspect]
     Active Substance: VALSARTAN
     Indication: HYPERTENSION
     Dosage: 160 MG, QD (MORNINGS)
     Route: 065
     Dates: start: 2015, end: 201803
  4. VALSACOR [Concomitant]
     Active Substance: VALSARTAN
     Indication: HYPERTENSION
     Dosage: 160 MG, BID
     Route: 065
     Dates: start: 20180716

REACTIONS (15)
  - Sleep disorder [Unknown]
  - Lung neoplasm malignant [Unknown]
  - Anxiety [Unknown]
  - Hypertonia [Unknown]
  - Mental disorder [Unknown]
  - Dry mouth [Unknown]
  - Gastrointestinal disorder [Unknown]
  - Disturbance in attention [Unknown]
  - General physical health deterioration [Unknown]
  - Product contamination [Unknown]
  - Emotional distress [Unknown]
  - Quality of life decreased [Unknown]
  - Palpitations [Unknown]
  - Impaired quality of life [Unknown]
  - Metastases to lung [Unknown]

NARRATIVE: CASE EVENT DATE: 20200911
